FAERS Safety Report 21018566 (Version 1)
Quarter: 2022Q2

REPORT INFORMATION
  Report Type: Spontaneous
  Country: US (occurrence: US)
  Receive Date: 20220628
  Receipt Date: 20220628
  Transmission Date: 20220721
  Serious: No
  Sender: FDA-Public Use
  Company Number: US-MYLANLABS-2022M1045452

PATIENT
  Age: 24 Year
  Sex: Female
  Weight: 49.44 kg

DRUGS (3)
  1. ESTRADIOL TRANSDERMAL SYSTEM [Suspect]
     Active Substance: ESTRADIOL
     Indication: Amenorrhoea
     Dosage: 0.075 MILLIGRAM, QD (TWICE WEEKLY)
     Route: 062
     Dates: start: 202104
  2. ESTRADIOL TRANSDERMAL SYSTEM [Suspect]
     Active Substance: ESTRADIOL
     Dosage: 0.075 MILLIGRAM, QD (TWICE WEEKLY)
     Route: 062
     Dates: start: 20220601
  3. PROGESTERONE [Concomitant]
     Active Substance: PROGESTERONE
     Indication: Product used for unknown indication
     Dosage: 1 DOSAGE FORM, QD (12 CONSECUTIVE DAYS)
     Route: 048
     Dates: start: 20220601

REACTIONS (4)
  - Behaviour disorder [Not Recovered/Not Resolved]
  - Headache [Not Recovered/Not Resolved]
  - Nausea [Not Recovered/Not Resolved]
  - Product adhesion issue [Unknown]

NARRATIVE: CASE EVENT DATE: 20220601
